FAERS Safety Report 4319385-X (Version None)
Quarter: 2004Q1

REPORT INFORMATION
  Report Type: 
  Country: None (occurrence: None)
  Receive Date: 20040316
  Receipt Date: 20040301
  Transmission Date: 20041129
  Serious: Yes (Other)
  Sender: FDA-Public Use
  Company Number: 2004-BP-01536BP

PATIENT
  Sex: 0

DRUGS (2)
  1. VIRAMUNE [Suspect]
  2. STAVUDINE (STAVUDINE) [Suspect]

REACTIONS (3)
  - DEPRESSION [None]
  - NEUROPATHY PERIPHERAL [None]
  - SOCIAL PROBLEM [None]
